FAERS Safety Report 6506125-9 (Version None)
Quarter: 2009Q4

REPORT INFORMATION
  Report Type: 
  Country: None (occurrence: None)
  Receive Date: 20091218
  Receipt Date: 20091214
  Transmission Date: 20100525
  Serious: Yes (Hospitalization)
  Sender: FDA-Public Use
  Company Number: US-ELI_LILLY_AND_COMPANY-US200911001361

PATIENT
  Sex: Male
  Weight: 88.889 kg

DRUGS (4)
  1. BYETTA [Suspect]
     Indication: TYPE 2 DIABETES MELLITUS
     Dosage: 5 UG, 2/D
     Dates: start: 20090102, end: 20091022
  2. LANTUS [Concomitant]
     Indication: TYPE 2 DIABETES MELLITUS
  3. PRANDIN /USA/ [Concomitant]
     Indication: TYPE 2 DIABETES MELLITUS
     Dosage: 0.5 MG, 3/D
     Route: 048
  4. ACE INHIBITOR NOS [Concomitant]

REACTIONS (7)
  - ANAEMIA [None]
  - CHEST PAIN [None]
  - CHOLELITHIASIS [None]
  - OCCULT BLOOD POSITIVE [None]
  - OFF LABEL USE [None]
  - PANCREATITIS [None]
  - WEIGHT DECREASED [None]
